FAERS Safety Report 6262324-5 (Version None)
Quarter: 2009Q3

REPORT INFORMATION
  Report Type: 
  Country: None (occurrence: None)
  Receive Date: 20090709
  Receipt Date: 20090702
  Transmission Date: 20100115
  Serious: Yes (Hospitalization)
  Sender: FDA-Public Use
  Company Number: PHHO2009DE07289

PATIENT
  Sex: Male

DRUGS (2)
  1. AMN107 AMN+CAP [Suspect]
     Indication: GASTROINTESTINAL STROMAL TUMOUR
     Dosage: 400MG
     Route: 048
     Dates: start: 20090331, end: 20090525
  2. AMN107 AMN+CAP [Suspect]
     Dosage: UNK
     Route: 048
     Dates: start: 20090612

REACTIONS (2)
  - ANAEMIA [None]
  - HAEMOGLOBIN DECREASED [None]
